FAERS Safety Report 9322037 (Version 1)
Quarter: 2013Q2

REPORT INFORMATION
  Report Type: Spontaneous
  Country: US (occurrence: None)
  Receive Date: 20130530
  Receipt Date: 20130530
  Transmission Date: 20140414
  Serious: No
  Sender: FDA-Public Use
  Company Number: None

PATIENT
  Sex: Female

DRUGS (1)
  1. FAT EMULSION [Suspect]
     Dosage: 113.5 ML OVER 24 HRS IV
     Route: 042
     Dates: start: 20130521

REACTIONS (2)
  - Product container issue [None]
  - Device breakage [None]
